FAERS Safety Report 8339258-5 (Version None)
Quarter: 2012Q2

REPORT INFORMATION
  Report Type: 
  Country: None (occurrence: None)
  Receive Date: 20120502
  Receipt Date: 20120418
  Transmission Date: 20120825
  Serious: Yes (Other)
  Sender: FDA-Public Use
  Company Number: 2012000098

PATIENT
  Age: 44 Year
  Sex: Female
  Weight: 93 kg

DRUGS (4)
  1. METFORMIN HCL [Suspect]
     Indication: DIABETES MELLITUS
     Dosage: 500 MG, QD, ORAL
     Route: 048
     Dates: start: 20100717, end: 20100909
  2. ACEON [Suspect]
     Indication: HYPERTENSION
     Dosage: 4 MG, QD, ORAL
     Route: 048
     Dates: start: 19960101
  3. DESOGESTREL AND ETHINYL ESTRADIOL [Concomitant]
  4. VENLAFAXINE [Concomitant]

REACTIONS (1)
  - DYSPNOEA [None]
